FAERS Safety Report 5375172-5 (Version None)
Quarter: 2007Q2

REPORT INFORMATION
  Report Type: 
  Country: None (occurrence: None)
  Receive Date: 20070629
  Receipt Date: 20060417
  Transmission Date: 20071010
  Serious: No
  Sender: FDA-Public Use
  Company Number: US-ASTRAZENECA-2006UW06767

PATIENT
  Age: 67 Year
  Sex: Female

DRUGS (1)
  1. TAMOXIFEN CITRATE [Suspect]
     Indication: BREAST CANCER IN SITU
     Route: 048

REACTIONS (6)
  - ARTHRALGIA [None]
  - ENDOMETRIAL HYPERTROPHY [None]
  - FATIGUE [None]
  - GROIN PAIN [None]
  - OVARIAN DISORDER [None]
  - VAGINAL DISCHARGE [None]
